FAERS Safety Report 25776223 (Version 1)
Quarter: 2025Q3

REPORT INFORMATION
  Report Type: Report from Study
  Country: AE (occurrence: AE)
  Receive Date: 20250909
  Receipt Date: 20250909
  Transmission Date: 20251020
  Serious: Yes (Death)
  Sender: STEMLINE THERAPEUTICS
  Company Number: AE-STEMLINE THERAPEUTICS B.V.-2025-STML-AE003102

PATIENT

DRUGS (1)
  1. ORSERDU [Suspect]
     Active Substance: ELACESTRANT
     Indication: Breast cancer
     Dosage: 345 MG, DAILY
     Route: 065
     Dates: start: 20250627, end: 20250830

REACTIONS (1)
  - Obstructive shock [Fatal]
